FAERS Safety Report 8054550-X (Version None)
Quarter: 2012Q1

REPORT INFORMATION
  Report Type: 
  Country: None (occurrence: None)
  Receive Date: 20120119
  Receipt Date: 20120110
  Transmission Date: 20120608
  Serious: Yes (Hospitalization)
  Sender: FDA-Public Use
  Company Number: US-BIOGENIDEC-2011BI044959

PATIENT
  Age: 53 Year
  Sex: Female

DRUGS (1)
  1. TYSABRI [Suspect]
     Indication: MULTIPLE SCLEROSIS
     Route: 042
     Dates: start: 20110120

REACTIONS (7)
  - FALL [None]
  - ASTHENIA [None]
  - DIZZINESS [None]
  - ABDOMINAL DISCOMFORT [None]
  - ANKLE FRACTURE [None]
  - MOBILITY DECREASED [None]
  - ADRENAL INSUFFICIENCY [None]
